FAERS Safety Report 23276409 (Version 2)
Quarter: 2024Q1

REPORT INFORMATION
  Report Type: Spontaneous
  Country: CN (occurrence: CN)
  Receive Date: 20231208
  Receipt Date: 20240226
  Transmission Date: 20240410
  Serious: Yes (Other)
  Sender: FDA-Public Use
  Company Number: CN-PFIZER INC-PV202300196980

PATIENT
  Age: 11 Month
  Sex: Male
  Weight: 9 kg

DRUGS (1)
  1. AZITHROMYCIN [Suspect]
     Active Substance: AZITHROMYCIN
     Indication: Anti-infective therapy
     Dosage: 0.1 G, 1X/DAY
     Route: 048
     Dates: start: 20231119, end: 20231120

REACTIONS (1)
  - Infantile diarrhoea [Recovered/Resolved]

NARRATIVE: CASE EVENT DATE: 20231120
